FAERS Safety Report 17187000 (Version 3)
Quarter: 2020Q1

REPORT INFORMATION
  Report Type: Spontaneous
  Country: FR (occurrence: FR)
  Receive Date: 20191220
  Receipt Date: 20200217
  Transmission Date: 20200409
  Serious: Yes (Other)
  Sender: FDA-Public Use
  Company Number: FR-GALDERMA-FR19075938

PATIENT
  Age: 58 Year
  Sex: Male

DRUGS (1)
  1. DOXYCYCLINE. [Suspect]
     Active Substance: DOXYCYCLINE
     Indication: CHLAMYDIAL INFECTION
     Route: 048

REACTIONS (10)
  - Oedema genital [Recovering/Resolving]
  - Skin plaque [Recovering/Resolving]
  - Contraindicated product administered [Recovered/Resolved]
  - Skin burning sensation [Recovering/Resolving]
  - Dermatitis bullous [Recovering/Resolving]
  - Intentional product use issue [Recovered/Resolved]
  - Genital pain [Recovering/Resolving]
  - Hot flush [Recovering/Resolving]
  - Fixed eruption [Recovering/Resolving]
  - Rash erythematous [Recovering/Resolving]
